FAERS Safety Report 15427484 (Version 3)
Quarter: 2023Q2

REPORT INFORMATION
  Report Type: Spontaneous
  Country: IT (occurrence: IT)
  Receive Date: 20180925
  Receipt Date: 20230419
  Transmission Date: 20230721
  Serious: Yes (Other)
  Sender: FDA-Public Use
  Company Number: IT-SHIRE-IT201836589

PATIENT
  Age: 23 Year
  Sex: Male

DRUGS (9)
  1. MESALAMINE [Suspect]
     Active Substance: MESALAMINE
     Indication: Colitis ulcerative
     Dosage: 2.4 GRAM, QD
     Route: 061
  2. MESALAMINE [Suspect]
     Active Substance: MESALAMINE
     Indication: Colitis
     Dosage: UNK, MONTHLY
     Route: 054
     Dates: start: 200111
  3. MESALAMINE [Suspect]
     Active Substance: MESALAMINE
     Indication: Proctitis ulcerative
     Dosage: 400 MILLIGRAM
     Route: 048
     Dates: start: 2006
  4. MESALAMINE [Suspect]
     Active Substance: MESALAMINE
     Dosage: 2.4 GRAM, QD
     Route: 048
     Dates: start: 2006
  5. MESALAMINE [Suspect]
     Active Substance: MESALAMINE
     Dosage: 2.4 GRAM, QD
     Route: 054
     Dates: start: 200602
  6. MESALAMINE [Suspect]
     Active Substance: MESALAMINE
     Dosage: 2.4 GRAM, QD
     Route: 048
     Dates: start: 200603, end: 200604
  7. MESALAMINE [Suspect]
     Active Substance: MESALAMINE
     Dosage: UNK
     Route: 048
     Dates: start: 200604
  8. MESALAMINE [Suspect]
     Active Substance: MESALAMINE
     Dosage: 2.4 GRAM, QD
     Route: 048
     Dates: start: 200605, end: 200605
  9. MESALAMINE [Suspect]
     Active Substance: MESALAMINE
     Dosage: 250 MILLIGRAM
     Route: 065
     Dates: start: 200605

REACTIONS (5)
  - Cross sensitivity reaction [Recovered/Resolved]
  - Pleural effusion [Recovered/Resolved]
  - Pleurisy [Recovered/Resolved]
  - Drug ineffective [Unknown]
  - Off label use [Unknown]

NARRATIVE: CASE EVENT DATE: 20060201
